FAERS Safety Report 7749586-X (Version None)
Quarter: 2011Q3

REPORT INFORMATION
  Report Type: 
  Country: None (occurrence: None)
  Receive Date: 20110908
  Receipt Date: 20110831
  Transmission Date: 20111222
  Serious: Yes (Hospitalization, Other)
  Sender: FDA-Public Use
  Company Number: 2011SP031964

PATIENT
  Age: 20 Year
  Sex: Male

DRUGS (3)
  1. ZYPREXA [Concomitant]
  2. SAPHRIS [Suspect]
     Indication: BIPOLAR DISORDER
     Dosage: 5 MG;ONCE;SL
     Route: 060
     Dates: start: 20110625, end: 20110626
  3. SAPHRIS [Suspect]
     Indication: SCHIZOPHRENIA
     Dosage: 5 MG;ONCE;SL
     Route: 060
     Dates: start: 20110625, end: 20110626

REACTIONS (4)
  - DYSTONIA [None]
  - BALANCE DISORDER [None]
  - CONVULSION [None]
  - TREMOR [None]
